FAERS Safety Report 10400125 (Version 1)
Quarter: 2014Q3

REPORT INFORMATION
  Report Type: Spontaneous
  Country: US (occurrence: US)
  Receive Date: 20140821
  Receipt Date: 20140821
  Transmission Date: 20150326
  Serious: Yes (Hospitalization)
  Sender: FDA-Public Use
  Company Number: US-PFIZER INC-2014229621

PATIENT
  Age: 68 Year
  Sex: Female

DRUGS (3)
  1. XELODA [Interacting]
     Active Substance: CAPECITABINE
     Dosage: UNK
  2. DILANTIN [Suspect]
     Active Substance: PHENYTOIN
     Dosage: UNK
  3. TYKERB [Interacting]
     Active Substance: LAPATINIB DITOSYLATE
     Indication: BREAST CANCER FEMALE
     Dosage: 1500 MG, DAILY
     Dates: start: 20140118

REACTIONS (2)
  - Drug interaction [Unknown]
  - Drug ineffective [Unknown]
